FAERS Safety Report 5657881-3 (Version None)
Quarter: 2008Q1

REPORT INFORMATION
  Report Type: 
  Country: None (occurrence: None)
  Receive Date: 20080305
  Receipt Date: 20080219
  Transmission Date: 20080703
  Serious: Yes (Hospitalization, Disabling, Congenital Anomaly)
  Sender: FDA-Public Use
  Company Number: 2008S1002813

PATIENT
  Age: 1 Hour
  Sex: Male

DRUGS (1)
  1. PAROXETINE HCL [Suspect]
     Indication: DEPRESSION
     Dates: start: 20050816

REACTIONS (2)
  - DRUG EXPOSURE DURING PREGNANCY [None]
  - TALIPES [None]
